FAERS Safety Report 8506695-5 (Version None)
Quarter: 2012Q2

REPORT INFORMATION
  Report Type: 
  Country: None (occurrence: None)
  Receive Date: 20120405
  Receipt Date: 20090205
  Transmission Date: 20120825
  Serious: Yes (Other)
  Sender: FDA-Public Use
  Company Number: PHEH2009US01658

PATIENT
  Sex: Female

DRUGS (2)
  1. VISKEN [Concomitant]
  2. RECLAST [Suspect]
     Dates: start: 20081016

REACTIONS (4)
  - PYREXIA [None]
  - MYALGIA [None]
  - PAIN [None]
  - ARTHRALGIA [None]
